FAERS Safety Report 6049216-1 (Version None)
Quarter: 2009Q1

REPORT INFORMATION
  Report Type: 
  Country: None (occurrence: None)
  Receive Date: 20090123
  Receipt Date: 20090108
  Transmission Date: 20090719
  Serious: Yes (Hospitalization)
  Sender: FDA-Public Use
  Company Number: DE-GENENTECH-271484

PATIENT
  Sex: Female

DRUGS (5)
  1. BLINDED BEVACIZUMAB [Suspect]
     Indication: DRUG USE FOR UNKNOWN INDICATION
     Dosage: 450 UNIT, Q3W
     Route: 042
     Dates: start: 20080630
  2. BLINDED PLACEBO [Suspect]
     Indication: DRUG USE FOR UNKNOWN INDICATION
     Dosage: 450 UNIT, Q3W
     Route: 042
     Dates: start: 20080630
  3. CARBOPLATIN [Suspect]
     Indication: OVARIAN EPITHELIAL CANCER
     Dosage: 485 UNIT, UNK
     Route: 042
     Dates: start: 20080630
  4. PACLITAXEL [Suspect]
     Indication: OVARIAN EPITHELIAL CANCER
     Dosage: 285 UNIT, UNK
     Route: 042
     Dates: start: 20080630
  5. LEVOTHYROXINE [Concomitant]
     Indication: DRUG USE FOR UNKNOWN INDICATION
     Dosage: UNK
     Dates: start: 19930101

REACTIONS (3)
  - ABDOMINAL PAIN [None]
  - LYMPHOCELE [None]
  - PYREXIA [None]
